FAERS Safety Report 6695000-5 (Version None)
Quarter: 2010Q2

REPORT INFORMATION
  Report Type: 
  Country: None (occurrence: None)
  Receive Date: 20100423
  Receipt Date: 20100412
  Transmission Date: 20101027
  Serious: Yes (Other)
  Sender: FDA-Public Use
  Company Number: PHHY2010FR23123

PATIENT
  Age: 31 Year
  Sex: Female

DRUGS (5)
  1. VOLTAREN [Suspect]
     Indication: BACK PAIN
     Dosage: 6 DF, PER DAY
     Dates: end: 20091130
  2. LEVONORGESTREL AND ETHINYL ESTRADIOL [Suspect]
  3. DAFALGAN [Suspect]
  4. GELUFENE [Suspect]
  5. SYNTOCINON [Concomitant]

REACTIONS (2)
  - DRUG EXPOSURE DURING PREGNANCY [None]
  - POLYHYDRAMNIOS [None]
